FAERS Safety Report 20217271 (Version 2)
Quarter: 2022Q1

REPORT INFORMATION
  Report Type: Report from Study
  Country: BR (occurrence: BR)
  Receive Date: 20211222
  Receipt Date: 20220118
  Transmission Date: 20220423
  Serious: Yes (Other)
  Sender: FDA-Public Use
  Company Number: BR-JNJFOC-20211236238

PATIENT
  Sex: Female
  Weight: 72 kg

DRUGS (1)
  1. REMICADE [Suspect]
     Active Substance: INFLIXIMAB
     Indication: Crohn^s disease
     Dosage: DOSE : 2 AMPOULES (REPORTER WAS NOT SURE)
     Route: 042
     Dates: start: 20160506

REACTIONS (4)
  - Pyoderma gangrenosum [Unknown]
  - Haemorrhage [Unknown]
  - Skin disorder [Unknown]
  - Drug resistance [Unknown]
